FAERS Safety Report 14531384 (Version 1)
Quarter: 2018Q1

REPORT INFORMATION
  Report Type: Spontaneous
  Country: US (occurrence: US)
  Receive Date: 20180213
  Receipt Date: 20180213
  Transmission Date: 20180509
  Serious: Yes (Disabling, Other)
  Sender: FDA-Public Use
  Company Number: None

PATIENT
  Age: 63 Year
  Sex: Female
  Weight: 132.75 kg

DRUGS (9)
  1. PREVSATIN [Concomitant]
  2. METFORMIN [Concomitant]
     Active Substance: METFORMIN HYDROCHLORIDE
  3. HCTZ [Concomitant]
     Active Substance: HYDROCHLOROTHIAZIDE
  4. OTEZAL [Concomitant]
  5. NOCTURNAL OXYGEN [Concomitant]
  6. COSENTYX [Suspect]
     Active Substance: SECUKINUMAB
     Indication: PSORIASIS
  7. PROAIR INHALER [Concomitant]
     Active Substance: ALBUTEROL SULFATE
  8. LOVAS [Concomitant]
  9. SYMACORT INHALER [Concomitant]

REACTIONS (1)
  - Dyspnoea [None]

NARRATIVE: CASE EVENT DATE: 20150530
